FAERS Safety Report 24149849 (Version 1)
Quarter: 2024Q3

REPORT INFORMATION
  Report Type: Report from Study
  Country: US (occurrence: US)
  Receive Date: 20240730
  Receipt Date: 20240730
  Transmission Date: 20241016
  Serious: Yes (Life-Threatening, Hospitalization, Other)
  Sender: AUROBINDO
  Company Number: US-MLMSERVICE-20240717-PI130051-00050-3

PATIENT
  Age: 15 Year
  Sex: Female
  Weight: 49 kg

DRUGS (1)
  1. AMLODIPINE [Suspect]
     Active Substance: AMLODIPINE BESYLATE
     Indication: Product used for unknown indication
     Dosage: UNK, APPROXIMATELY 200?300 MG OF THE DRUG
     Route: 048

REACTIONS (3)
  - Lactic acidosis [Recovering/Resolving]
  - Distributive shock [Recovering/Resolving]
  - Intentional overdose [Recovering/Resolving]
